FAERS Safety Report 5707895-X (Version None)
Quarter: 2008Q2

REPORT INFORMATION
  Report Type: 
  Country: None (occurrence: None)
  Receive Date: 20080417
  Receipt Date: 20080407
  Transmission Date: 20081010
  Serious: Yes (Hospitalization)
  Sender: FDA-Public Use
  Company Number: DE-BRISTOL-MYERS SQUIBB COMPANY-14130413

PATIENT
  Age: 74 Year
  Sex: Female
  Weight: 72 kg

DRUGS (4)
  1. CETUXIMAB [Suspect]
     Indication: COLORECTAL CANCER METASTATIC
     Dosage: RECENT ADMINISTRATION - 18-MAR-2008.
     Route: 042
     Dates: start: 20080304
  2. UFT [Suspect]
     Indication: COLORECTAL CANCER METASTATIC
     Dosage: 5 DOSAGE FORM = 5 CAPS. RECENT ADMINISTRATION - 24-MAR-2008.
     Route: 048
     Dates: start: 20080304
  3. OXALIPLATIN [Suspect]
     Indication: COLORECTAL CANCER METASTATIC
     Dosage: RECENT ADMINISTRATION - 18-MAR-2008.
     Route: 042
     Dates: start: 20080304
  4. FOLINIC ACID [Concomitant]
     Indication: COLORECTAL CANCER METASTATIC
     Dosage: RECENT ADMINISTRATION - 24-MAR-2008.
     Route: 048
     Dates: start: 20080304

REACTIONS (2)
  - ANOREXIA [None]
  - DIARRHOEA [None]
